FAERS Safety Report 6183983-1 (Version None)
Quarter: 2009Q2

REPORT INFORMATION
  Report Type: 
  Country: None (occurrence: None)
  Receive Date: 20090508
  Receipt Date: 20090430
  Transmission Date: 20091009
  Serious: Yes (Other)
  Sender: FDA-Public Use
  Company Number: BE-ASTRAZENECA-2009AC01098

PATIENT
  Age: 45 Year
  Sex: Male

DRUGS (3)
  1. SEROQUEL [Suspect]
     Dosage: 3 X HALF TABLET PER DAY
     Route: 048
     Dates: start: 20090401
  2. SEROQUEL [Suspect]
     Route: 048
     Dates: start: 20090401
  3. ALCOHOL [Concomitant]

REACTIONS (4)
  - ANXIETY [None]
  - DISTURBANCE IN ATTENTION [None]
  - DIZZINESS [None]
  - MALAISE [None]
